FAERS Safety Report 8354170-3 (Version None)
Quarter: 2012Q2

REPORT INFORMATION
  Report Type: 
  Country: None (occurrence: None)
  Receive Date: 20120511
  Receipt Date: 20120508
  Transmission Date: 20120825
  Serious: Yes (Other)
  Sender: FDA-Public Use
  Company Number: PHHY2012GB039178

PATIENT
  Age: 63 Year
  Sex: Male

DRUGS (1)
  1. CETIRIZINE [Suspect]
     Indication: PRURITUS

REACTIONS (6)
  - LETHARGY [None]
  - TUBULOINTERSTITIAL NEPHRITIS [None]
  - NOCTURIA [None]
  - THIRST [None]
  - RENAL FAILURE ACUTE [None]
  - HYPERSENSITIVITY [None]
